FAERS Safety Report 25663449 (Version 1)
Quarter: 2025Q3

REPORT INFORMATION
  Report Type: Spontaneous
  Country: TN (occurrence: TN)
  Receive Date: 20250811
  Receipt Date: 20250811
  Transmission Date: 20251020
  Serious: Yes (Other)
  Sender: IPCA
  Company Number: TN-IPCA LABORATORIES LIMITED-IPC-2025-TN-002131

PATIENT

DRUGS (1)
  1. LEVOCETIRIZINE [Suspect]
     Active Substance: LEVOCETIRIZINE
     Indication: Product used for unknown indication
     Route: 015

REACTIONS (2)
  - Pancytopenia [Recovered/Resolved]
  - Foetal exposure during pregnancy [Unknown]
